FAERS Safety Report 6805472-0 (Version None)
Quarter: 2010Q2

REPORT INFORMATION
  Report Type: 
  Country: None (occurrence: None)
  Receive Date: 20100628
  Receipt Date: 20071220
  Transmission Date: 20101027
  Serious: No
  Sender: FDA-Public Use
  Company Number: US-PFIZER INC-2007107486

PATIENT
  Sex: Female
  Weight: 45.909 kg

DRUGS (5)
  1. XALATAN [Suspect]
     Indication: GLAUCOMA
     Route: 031
     Dates: start: 19970101
  2. LASIX [Concomitant]
  3. LANOXIN [Concomitant]
  4. DRUG, UNSPECIFIED [Concomitant]
  5. TOPROL-XL [Concomitant]

REACTIONS (3)
  - EYE IRRITATION [None]
  - HEADACHE [None]
  - MUSCLE TWITCHING [None]
